FAERS Safety Report 13217902 (Version 1)
Quarter: 2017Q1

REPORT INFORMATION
  Report Type: Other
  Country: US (occurrence: US)
  Receive Date: 20170210
  Receipt Date: 20170210
  Transmission Date: 20170428
  Serious: No
  Sender: FDA-Public Use
  Company Number: US-ACORDA-ACO_121971_2016

PATIENT
  Age: 42 Year
  Sex: Female

DRUGS (5)
  1. METHOTREXATE. [Suspect]
     Active Substance: METHOTREXATE
     Indication: SYSTEMIC SCLERODERMA
     Dosage: 6 DF, QD
     Route: 048
     Dates: start: 20160127
  2. AMPYRA [Suspect]
     Active Substance: DALFAMPRIDINE
     Indication: GAIT DISTURBANCE
     Dosage: 10 MG, BID
     Route: 048
     Dates: start: 20160129
  3. PREDNISONE. [Suspect]
     Active Substance: PREDNISONE
     Indication: SYSTEMIC SCLERODERMA
     Dosage: 10 MG, QD
     Route: 048
     Dates: start: 20160127
  4. TECFIDERA [Concomitant]
     Active Substance: DIMETHYL FUMARATE
     Indication: PRODUCT USED FOR UNKNOWN INDICATION
     Dosage: 240 MG, BID
     Route: 065
  5. FOLIC ACID. [Concomitant]
     Active Substance: FOLIC ACID
     Indication: PRODUCT USED FOR UNKNOWN INDICATION
     Dosage: 1 MG, UNK
     Route: 065
     Dates: start: 20160127

REACTIONS (1)
  - Alopecia [Not Recovered/Not Resolved]

NARRATIVE: CASE EVENT DATE: 20110102
